FAERS Safety Report 11805922 (Version 3)
Quarter: 2015Q4

REPORT INFORMATION
  Report Type: Spontaneous
  Country: BR (occurrence: BR)
  Receive Date: 20151207
  Receipt Date: 20151218
  Transmission Date: 20160305
  Serious: Yes (Other)
  Sender: FDA-Public Use
  Company Number: BR-ROCHE-1571360

PATIENT
  Age: 53 Year
  Sex: Female
  Weight: 70.8 kg

DRUGS (2)
  1. HERCEPTIN [Suspect]
     Active Substance: TRASTUZUMAB
     Indication: BREAST CANCER
     Route: 042
     Dates: start: 20140217, end: 20140217
  2. HERCEPTIN [Suspect]
     Active Substance: TRASTUZUMAB
     Dosage: 12 TH CYCLE
     Route: 042
     Dates: start: 20150211, end: 20150211

REACTIONS (6)
  - Arthralgia [Recovered/Resolved]
  - Dry mouth [Recovered/Resolved]
  - Tachycardia [Recovered/Resolved]
  - Chills [Recovered/Resolved]
  - Ejection fraction decreased [Unknown]
  - Tremor [Recovered/Resolved]

NARRATIVE: CASE EVENT DATE: 20140217
